FAERS Safety Report 16764972 (Version 3)
Quarter: 2020Q3

REPORT INFORMATION
  Report Type: Report from Study
  Country: US (occurrence: US)
  Receive Date: 20190903
  Receipt Date: 20200310
  Transmission Date: 20201105
  Serious: Yes (Other)
  Sender: FDA-Public Use
  Company Number: US-ROCHE-2388165

PATIENT

DRUGS (2)
  1. CERDULATINIB. [Suspect]
     Active Substance: CERDULATINIB
     Indication: B-CELL LYMPHOMA RECURRENT
     Dosage: PERMITTED DOSE REDUCTION TO 15 MG BID.
     Route: 065
  2. RITUXIMAB. [Suspect]
     Active Substance: RITUXIMAB
     Indication: B-CELL LYMPHOMA RECURRENT
     Route: 065

REACTIONS (9)
  - Diarrhoea [Unknown]
  - Lipase increased [Unknown]
  - Pneumonia [Unknown]
  - Multiple organ dysfunction syndrome [Unknown]
  - Infection [Unknown]
  - Hypertension [Unknown]
  - Amylase increased [Unknown]
  - Neutropenia [Unknown]
  - Nausea [Unknown]
